FAERS Safety Report 8605476-1 (Version None)
Quarter: 2012Q3

REPORT INFORMATION
  Report Type: 
  Country: None (occurrence: None)
  Receive Date: 20120820
  Receipt Date: 20120810
  Transmission Date: 20120928
  Serious: Yes (Hospitalization)
  Sender: FDA-Public Use
  Company Number: DK-ASTRAZENECA-2012SE57743

PATIENT

DRUGS (1)
  1. SEROQUEL XR [Suspect]
     Route: 048

REACTIONS (5)
  - HYPERTENSION [None]
  - MANIA [None]
  - OEDEMA [None]
  - ELECTROLYTE IMBALANCE [None]
  - DRUG DOSE OMISSION [None]
